FAERS Safety Report 23141790 (Version 1)
Quarter: 2023Q4

REPORT INFORMATION
  Report Type: Spontaneous
  Country: BA (occurrence: BA)
  Receive Date: 20231103
  Receipt Date: 20231103
  Transmission Date: 20240110
  Serious: Yes (Death, Hospitalization, Other)
  Sender: FDA-Public Use
  Company Number: BA-CELLTRION INC.-2023BA021216

PATIENT

DRUGS (1)
  1. INFLIXIMAB [Suspect]
     Active Substance: INFLIXIMAB
     Indication: Behcet^s syndrome
     Dosage: UNK
     Dates: start: 202109

REACTIONS (6)
  - Septic shock [Fatal]
  - Pneumonia [Unknown]
  - Acute respiratory distress syndrome [Unknown]
  - Pulmonary tuberculosis [Unknown]
  - Staphylococcal skin infection [Unknown]
  - Off label use [Unknown]
